FAERS Safety Report 14685670 (Version 1)
Quarter: 2018Q1

REPORT INFORMATION
  Report Type: Spontaneous
  Country: CH (occurrence: CH)
  Receive Date: 20180327
  Receipt Date: 20180327
  Transmission Date: 20180509
  Serious: Yes (Other)
  Sender: FDA-Public Use
  Company Number: CH-PFIZER INC-2018117618

PATIENT
  Age: 87 Year
  Sex: Male

DRUGS (21)
  1. XALATAN [Suspect]
     Active Substance: LATANOPROST
     Dosage: 1 GTT, 1X/DAY (IN EACH EYE. STARTED BEFORE 04OCT2017)
     Route: 047
  2. MOVICOL [Suspect]
     Active Substance: POLYETHYLENE GLYCOL 3350\POTASSIUM CHLORIDE\SODIUM BICARBONATE\SODIUM CHLORIDE
     Dosage: 1 DF, 2X/DAY (STARTED BEFORE 04OCT2017)
     Route: 048
  3. ARTEOPTIC [Suspect]
     Active Substance: CARTEOLOL HYDROCHLORIDE
     Dosage: 1 GTT, 1X/DAY (IN EACH EYE. STARTED BEFORE 04OCT2017)
     Route: 047
  4. ASPIRIN CARDIO [Concomitant]
     Active Substance: ASPIRIN
     Dosage: UNK
  5. NEXIUM [Concomitant]
     Active Substance: ESOMEPRAZOLE MAGNESIUM
     Dosage: UNK
     Dates: end: 20171004
  6. CALCIMAGON D3 [Suspect]
     Active Substance: CALCIUM\CHOLECALCIFEROL
     Dosage: 1 DF, 1X/DAY (1 DF = 500MG/800 UI. STARTED BEFORE 04OCT2017)
     Route: 048
  7. QUETIAPIN [Suspect]
     Active Substance: QUETIAPINE
     Dosage: 12.5 MG, 2X/DAY, AS NEEDED (STARTED BEFORE 04OCT2017)
     Route: 048
  8. VITAMIN B12 [Concomitant]
     Active Substance: CYANOCOBALAMIN
     Dosage: UNK
     Dates: end: 20171004
  9. OXYNORM [Concomitant]
     Active Substance: OXYCODONE HYDROCHLORIDE
     Dosage: UNK
     Dates: start: 20171013, end: 20171016
  10. LISINOPRIL. [Suspect]
     Active Substance: LISINOPRIL
     Dosage: 10 MG, 1X/DAY (STARTED BEFORE 04OCT2017)
     Route: 048
  11. CITALOPRAM [Suspect]
     Active Substance: CITALOPRAM HYDROBROMIDE
     Dosage: 20 MG, 1X/DAY (STARTED BEFORE 04OCT2017)
     Route: 048
  12. DAFALGAN [Suspect]
     Active Substance: ACETAMINOPHEN
     Dosage: 1000 MG, 3X/DAY (STARTED BEFORE 04OCT2017)
     Route: 048
  13. ANXIOLIT [Suspect]
     Active Substance: OXAZEPAM
     Dosage: UNK (STARTED BEFORE 04OCT2017)
     Route: 048
  14. LYRICA [Suspect]
     Active Substance: PREGABALIN
     Dosage: 50 MG, 2X/DAY (STARTED BEFORE 04OCT2017)
     Route: 048
     Dates: end: 20171023
  15. LAXOBERON [Suspect]
     Active Substance: SODIUM PICOSULFATE
     Dosage: 5 MG, 1X/DAY, AS NEEDED  (STARTED BEFORE 04OCT2017)
     Route: 048
  16. JANUMET [Suspect]
     Active Substance: METFORMIN HYDROCHLORIDE\SITAGLIPTIN PHOSPHATE
     Dosage: 1 DF, 1X/DAY (1 DF = 50/1000. STARTED BEFORE 04OCT2017)
     Route: 048
  17. DUODART [Suspect]
     Active Substance: DUTASTERIDE\TAMSULOSIN
     Dosage: 1 DF, 1X/DAY
     Route: 048
     Dates: start: 20170719
  18. MOTILIUM [Suspect]
     Active Substance: DOMPERIDONE
     Dosage: 10 MG, 3X/DAY, AS NEEDED (STARTED BEFORE 04OCT2017)
     Route: 048
  19. LYRICA [Suspect]
     Active Substance: PREGABALIN
     Dosage: 50 MG, 3X/DAY
     Route: 048
     Dates: start: 20171024
  20. ANXIOLIT [Suspect]
     Active Substance: OXAZEPAM
     Dosage: 15 MG, 1X/DAY, AS NEEDED
     Route: 048
     Dates: start: 20180116
  21. MIACALCIC [Concomitant]
     Active Substance: CALCITONIN SALMON
     Dosage: UNK
     Dates: end: 20171004

REACTIONS (4)
  - Eczema [Unknown]
  - Dry skin [Unknown]
  - Hyperkeratosis [Unknown]
  - Pruritus [Not Recovered/Not Resolved]

NARRATIVE: CASE EVENT DATE: 20171010
